FAERS Safety Report 10063999 (Version 2)
Quarter: 2014Q2

REPORT INFORMATION
  Report Type: Spontaneous
  Country: DE (occurrence: DE)
  Receive Date: 20140408
  Receipt Date: 20140408
  Transmission Date: 20141212
  Serious: Yes (Other)
  Sender: FDA-Public Use
  Company Number: DE-ROCHE-1369765

PATIENT
  Age: 65 Year
  Sex: Female

DRUGS (2)
  1. MABTHERA [Suspect]
     Indication: NON-HODGKIN^S LYMPHOMA
     Route: 065
     Dates: start: 201208
  2. BENDAMUSTINE [Concomitant]
     Indication: NON-HODGKIN^S LYMPHOMA

REACTIONS (3)
  - Rash pustular [Recovering/Resolving]
  - Parapsoriasis [Recovering/Resolving]
  - Herpes zoster [Unknown]
